FAERS Safety Report 14510860 (Version 8)
Quarter: 2025Q3

REPORT INFORMATION
  Report Type: Report from Study
  Country: CA (occurrence: CA)
  Receive Date: 20180209
  Receipt Date: 20250918
  Transmission Date: 20251020
  Serious: Yes (Other)
  Sender: TAKEDA
  Company Number: CA-TAKEDA-2018TUS002973

PATIENT
  Age: 33 Year
  Sex: Male

DRUGS (8)
  1. VEDOLIZUMAB [Suspect]
     Active Substance: VEDOLIZUMAB
     Indication: Crohn^s disease
  2. VEDOLIZUMAB [Suspect]
     Active Substance: VEDOLIZUMAB
  3. VEDOLIZUMAB [Suspect]
     Active Substance: VEDOLIZUMAB
  4. VEDOLIZUMAB [Suspect]
     Active Substance: VEDOLIZUMAB
  5. VEDOLIZUMAB [Suspect]
     Active Substance: VEDOLIZUMAB
     Indication: Crohn^s disease
     Dosage: 108 MILLIGRAM, Q2WEEKS
     Dates: start: 20221209
  6. CIPRALEX [Suspect]
     Active Substance: ESCITALOPRAM OXALATE
     Indication: Product used for unknown indication
  7. ALLOPURINOL [Concomitant]
     Active Substance: ALLOPURINOL
  8. LOPERAMIDE [Concomitant]
     Active Substance: LOPERAMIDE

REACTIONS (19)
  - Crohn^s disease [Not Recovered/Not Resolved]
  - Loss of consciousness [Unknown]
  - Uveitis [Unknown]
  - Rectal haemorrhage [Unknown]
  - Hypoaesthesia [Unknown]
  - Male orgasmic disorder [Unknown]
  - Insomnia [Unknown]
  - Abdominal discomfort [Unknown]
  - Faeces soft [Unknown]
  - Diarrhoea [Unknown]
  - Gouty arthritis [Unknown]
  - Enthesopathy [Unknown]
  - Iritis [Unknown]
  - Malaise [Unknown]
  - Abdominal pain [Unknown]
  - Hyperhidrosis [Unknown]
  - Headache [Unknown]
  - Fatigue [Unknown]
  - Arthralgia [Unknown]

NARRATIVE: CASE EVENT DATE: 20180130
